FAERS Safety Report 8069574-6 (Version None)
Quarter: 2012Q1

REPORT INFORMATION
  Report Type: 
  Country: None (occurrence: None)
  Receive Date: 20120119
  Receipt Date: 20120105
  Transmission Date: 20120608
  Serious: Yes (Hospitalization)
  Sender: FDA-Public Use
  Company Number: AXC-2012-000006

PATIENT
  Age: 15 Year
  Sex: Male

DRUGS (2)
  1. URSODIOL [Suspect]
     Indication: LIVER FUNCTION TEST ABNORMAL
     Dosage: 300 MG, BID,ORAL
     Route: 048
     Dates: start: 20110820, end: 20111102
  2. URSODIOL [Suspect]
     Indication: LIVER DISORDER
     Dosage: 300 MG, BID,ORAL
     Route: 048
     Dates: start: 20110820, end: 20111102

REACTIONS (2)
  - PANCYTOPENIA [None]
  - APLASTIC ANAEMIA [None]
